FAERS Safety Report 10166454 (Version 1)
Quarter: 2014Q2

REPORT INFORMATION
  Report Type: Spontaneous
  Country: US (occurrence: None)
  Receive Date: 20140509
  Receipt Date: 20140509
  Transmission Date: 20141212
  Serious: Yes (Other)
  Sender: FDA-Public Use
  Company Number: None

PATIENT
  Age: 58 Year
  Sex: Female
  Weight: 64.77 kg

DRUGS (1)
  1. XYLOCAINE WITH EPINEPHRINE [Suspect]
     Indication: SKIN LESION EXCISION
     Dosage: 3CC  ONCE  SUBCUTANEOUS
     Route: 058
     Dates: start: 20140313

REACTIONS (1)
  - Drug effect incomplete [None]
